FAERS Safety Report 12703234 (Version 4)
Quarter: 2016Q4

REPORT INFORMATION
  Report Type: Spontaneous
  Country: IT (occurrence: IT)
  Receive Date: 20160831
  Receipt Date: 20161007
  Transmission Date: 20170207
  Serious: Yes (Death, Hospitalization, Other)
  Sender: FDA-Public Use
  Company Number: IT-TEVA-687563ACC

PATIENT
  Age: 49 Year
  Sex: Male

DRUGS (6)
  1. VORICONAZOLE. [Suspect]
     Active Substance: VORICONAZOLE
     Indication: MENINGITIS CANDIDA
     Dosage: 6 MG/KG (FOR EVERY 12 HR FOR 2 DOSE)
     Route: 065
  2. AMPHOTERICIN B. [Suspect]
     Active Substance: AMPHOTERICIN B
     Indication: PRODUCT USED FOR UNKNOWN INDICATION
  3. FLUCONAZOLE. [Suspect]
     Active Substance: FLUCONAZOLE
     Indication: PRODUCT USED FOR UNKNOWN INDICATION
  4. VORICONAZOLE. [Suspect]
     Active Substance: VORICONAZOLE
     Dosage: 12 MILLIGRAM DAILY;
     Route: 042
  5. FLUCONAZOLE. [Suspect]
     Active Substance: FLUCONAZOLE
     Indication: MENINGITIS CANDIDA
  6. VORICONAZOLE. [Suspect]
     Active Substance: VORICONAZOLE
     Dosage: 4 MG/KG, (FOR EVERY 12 HR)
     Route: 065

REACTIONS (7)
  - Bacterial sepsis [Unknown]
  - Meningitis [Unknown]
  - Therapy non-responder [Unknown]
  - Drug ineffective [Not Recovered/Not Resolved]
  - Treatment failure [Fatal]
  - Condition aggravated [Not Recovered/Not Resolved]
  - Drug resistance [Fatal]
